FAERS Safety Report 15337798 (Version 1)
Quarter: 2018Q4

REPORT INFORMATION
  Report Type: Spontaneous
  Country: DE (occurrence: FR)
  Receive Date: 20180831
  Receipt Date: 20180831
  Transmission Date: 20190204
  Serious: Yes (Other)
  Sender: FDA-Public Use
  Company Number: DE-DRREDDYS-GER/GER/18/0099932

PATIENT
  Age: 55 Year
  Sex: Female
  Weight: 65 kg

DRUGS (3)
  1. MIANSERIN [Interacting]
     Active Substance: MIANSERIN
     Indication: ANXIETY DISORDER
  2. ZIPRASIDON BETA 40 MG HARTKAPSELN [Suspect]
     Active Substance: ZIPRASIDONE HYDROCHLORIDE
     Indication: SCHIZOPHRENIA
     Route: 048
     Dates: start: 2000
  3. DOMINAL FORTE 80 MG [Interacting]
     Active Substance: PROTHIPENDYL HYDROCHLORIDE
     Indication: PROPHYLAXIS
     Dosage: IN THE EVENINGS
     Dates: start: 2000

REACTIONS (12)
  - Abdominal pain upper [Recovering/Resolving]
  - Dysphagia [Recovering/Resolving]
  - Agitation [Recovering/Resolving]
  - Malaise [Recovering/Resolving]
  - Oropharyngeal pain [Recovering/Resolving]
  - Abnormal behaviour [Recovering/Resolving]
  - Drug interaction [Unknown]
  - Pharyngitis [Recovering/Resolving]
  - Hypotension [Recovering/Resolving]
  - Dyspepsia [Recovering/Resolving]
  - Cough [Recovered/Resolved]
  - Gastritis [Recovering/Resolving]

NARRATIVE: CASE EVENT DATE: 2016
